FAERS Safety Report 18259223 (Version 1)
Quarter: 2020Q3

REPORT INFORMATION
  Report Type: Spontaneous
  Country: US (occurrence: US)
  Receive Date: 20200911
  Receipt Date: 20200911
  Transmission Date: 20201103
  Serious: Yes (Other)
  Sender: FDA-Public Use
  Company Number: US-PFIZER INC-2020351596

PATIENT
  Age: 46 Year
  Sex: Female
  Weight: 52.16 kg

DRUGS (2)
  1. XANAX [Concomitant]
     Active Substance: ALPRAZOLAM
     Indication: ANXIETY
     Dosage: 0.25 MG, AS NEEDED
  2. PRISTIQ EXTENDED?RELEASE [Suspect]
     Active Substance: DESVENLAFAXINE SUCCINATE
     Indication: DEPRESSION
     Dosage: 50 MG, 1X/DAY (TAKE ONCE DAILY BY MOUTH)
     Route: 048

REACTIONS (5)
  - Hypoaesthesia [Unknown]
  - Feeling abnormal [Unknown]
  - Crying [Unknown]
  - Drug withdrawal syndrome [Unknown]
  - Malaise [Not Recovered/Not Resolved]
